FAERS Safety Report 10008852 (Version 2)
Quarter: 2014Q2

REPORT INFORMATION
  Report Type: Report from Study
  Country: JP (occurrence: JP)
  Receive Date: 20140313
  Receipt Date: 20140415
  Transmission Date: 20141212
  Serious: No
  Sender: FDA-Public Use
  Company Number: JP-UCBSA-114489

PATIENT
  Age: 67 Year
  Sex: Male
  Weight: 64 kg

DRUGS (6)
  1. CIMZIA [Suspect]
     Indication: RHEUMATOID ARTHRITIS
     Route: 058
     Dates: start: 20131025, end: 20140131
  2. CIMZIA [Suspect]
     Indication: RHEUMATOID ARTHRITIS
     Route: 058
     Dates: start: 20130913, end: 20131011
  3. PREDONINE [Concomitant]
     Dosage: 5 MG DAILY
     Route: 048
     Dates: start: 20131108, end: 20131219
  4. PREDONINE [Concomitant]
     Dosage: 4 MG DAILY
     Route: 048
     Dates: start: 20131220
  5. FOLIAMIN [Concomitant]
     Dosage: 1 DF DAILY
  6. METOLATE [Concomitant]
     Route: 048

REACTIONS (1)
  - Oral herpes [Recovered/Resolved]
